FAERS Safety Report 21553978 (Version 1)
Quarter: 2022Q4

REPORT INFORMATION
  Report Type: Report from Study
  Country: US (occurrence: None)
  Receive Date: 20221104
  Receipt Date: 20221104
  Transmission Date: 20230113
  Serious: Yes (Hospitalization)
  Sender: FDA-Public Use
  Company Number: 2022A360740

PATIENT
  Age: 27487 Day
  Sex: Female
  Weight: 57.2 kg

DRUGS (1)
  1. FASENRA [Suspect]
     Active Substance: BENRALIZUMAB
     Indication: Asthma
     Route: 058
     Dates: start: 20220913

REACTIONS (3)
  - Respiratory syncytial virus infection [Unknown]
  - Atrial fibrillation [Unknown]
  - Cardiac failure [Unknown]

NARRATIVE: CASE EVENT DATE: 20221017
